FAERS Safety Report 4899896-9 (Version None)
Quarter: 2006Q1

REPORT INFORMATION
  Report Type: 
  Country: None (occurrence: None)
  Receive Date: 20060118
  Receipt Date: 20050922
  Transmission Date: 20060701
  Serious: No
  Sender: FDA-Public Use
  Company Number: 2005001878

PATIENT
  Age: 77 Year
  Sex: Female
  Weight: 49.8957 kg

DRUGS (8)
  1. TARCEVA [Suspect]
     Indication: NON-SMALL CELL LUNG CANCER
     Dosage: STOPPED TARCEVA FOR 1 WEEK
     Dates: start: 20050627
  2. CARDIZEM [Concomitant]
  3. LESCOL [Concomitant]
  4. SYNTHROID [Concomitant]
  5. PROZAC [Concomitant]
  6. LITHIUM (LITHIUM) [Concomitant]
  7. REMERON [Concomitant]
  8. ATIVAN [Concomitant]

REACTIONS (7)
  - ALOPECIA [None]
  - DRY SKIN [None]
  - FURUNCLE [None]
  - NAIL BED TENDERNESS [None]
  - ONYCHOMADESIS [None]
  - RASH PUSTULAR [None]
  - SKIN EXFOLIATION [None]
